FAERS Safety Report 5176359-7 (Version None)
Quarter: 2006Q4

REPORT INFORMATION
  Report Type: 
  Country: None (occurrence: None)
  Receive Date: 20061207
  Receipt Date: 20061121
  Transmission Date: 20070319
  Serious: Yes (Life-Threatening, Hospitalization)
  Sender: FDA-Public Use
  Company Number: SPV1-2006-01779

PATIENT
  Age: 2 Year
  Sex: Male
  Weight: 12 kg

DRUGS (1)
  1. CARBAMAZEPINE [Suspect]
     Indication: DRUG USE FOR UNKNOWN INDICATION
     Dosage: 5 - 400 MG TABLETS, ORAL
     Route: 048

REACTIONS (6)
  - ACCIDENTAL DRUG INTAKE BY CHILD [None]
  - ACCIDENTAL OVERDOSE [None]
  - GRAND MAL CONVULSION [None]
  - LEUKOPENIA [None]
  - NEUTROPENIA [None]
  - RESPIRATORY ARREST [None]
